FAERS Safety Report 8051346-X (Version None)
Quarter: 2012Q1

REPORT INFORMATION
  Report Type: 
  Country: None (occurrence: None)
  Receive Date: 20120117
  Receipt Date: 20120113
  Transmission Date: 20120608
  Serious: Yes (Hospitalization)
  Sender: FDA-Public Use
  Company Number: GB-ROCHE-1030606

PATIENT
  Sex: Male
  Weight: 92 kg

DRUGS (5)
  1. CYCLOPHOSPHAMIDE [Concomitant]
  2. MABTHERA [Suspect]
     Indication: RHEUMATOID ARTHRITIS
     Dates: start: 20070430
  3. METHOTREXATE [Concomitant]
  4. STEROIDS - UNKNOWN TYPE [Concomitant]
  5. AZULFIDINE [Concomitant]

REACTIONS (1)
  - MITRAL VALVE REPLACEMENT [None]
